FAERS Safety Report 7618248-1 (Version None)
Quarter: 2011Q3

REPORT INFORMATION
  Report Type: 
  Country: None (occurrence: None)
  Receive Date: 20110718
  Receipt Date: 20110705
  Transmission Date: 20111222
  Serious: Yes (Other)
  Sender: FDA-Public Use
  Company Number: FR-GLAXOSMITHKLINE-B0730801A

PATIENT
  Sex: Female

DRUGS (3)
  1. VALACYCLOVIR HYDROCHLORIDE [Suspect]
     Indication: HERPES OPHTHALMIC
     Route: 048
     Dates: start: 20110127, end: 20110204
  2. CEFPODOXIME PROXETIL [Concomitant]
     Indication: SINUSITIS
     Route: 048
     Dates: start: 20110101
  3. PREDNISOLONE [Concomitant]
     Indication: SINUSITIS
     Route: 048
     Dates: start: 20110101

REACTIONS (5)
  - POLYARTHRITIS [None]
  - DIARRHOEA [None]
  - ABDOMINAL PAIN [None]
  - JOINT EFFUSION [None]
  - INFLAMMATION [None]
